FAERS Safety Report 7761453-4 (Version None)
Quarter: 2011Q3

REPORT INFORMATION
  Report Type: 
  Country: None (occurrence: None)
  Receive Date: 20110915
  Receipt Date: 20110901
  Transmission Date: 20111222
  Serious: Yes (Hospitalization, Disabling)
  Sender: FDA-Public Use
  Company Number: 2011AP001922

PATIENT
  Age: 76 Year
  Sex: Male

DRUGS (11)
  1. FELODIPINE [Concomitant]
  2. FUROSEMIDE [Concomitant]
  3. ISOSORBIDE MONONITRATE [Concomitant]
  4. ASPIRIN [Concomitant]
  5. EZETIMIBE [Concomitant]
  6. CLOPIDOGREL [Concomitant]
  7. IVABRADINE (IVABRADINE) [Suspect]
     Indication: ANGINA PECTORIS
     Dosage: 5 MG, PO, BID
     Route: 048
     Dates: start: 20110301, end: 20110817
  8. ATORVASTATIN [Concomitant]
  9. LANSOPRAZOLE [Concomitant]
  10. ADALAT [Concomitant]
  11. RAMIPRIL [Suspect]
     Indication: HYPERTENSION
     Dosage: 2.5 MG, QD, PO
     Route: 048
     Dates: start: 20110803

REACTIONS (5)
  - PULMONARY FIBROSIS [None]
  - BRONCHIECTASIS [None]
  - DYSPNOEA [None]
  - WEIGHT DECREASED [None]
  - LUNG DISORDER [None]
